FAERS Safety Report 10693735 (Version 3)
Quarter: 2016Q1

REPORT INFORMATION
  Report Type: Spontaneous
  Country: US (occurrence: US)
  Receive Date: 20150106
  Receipt Date: 20160212
  Transmission Date: 20160525
  Serious: Yes (Other)
  Sender: FDA-Public Use
  Company Number: US-BAYER-2015-001117

PATIENT
  Age: 32 Year
  Sex: Female
  Weight: 90.68 kg

DRUGS (1)
  1. MIRENA [Suspect]
     Active Substance: LEVONORGESTREL
     Indication: CONTRACEPTION
     Dosage: 20 MCG/24HR, CONT
     Route: 015
     Dates: start: 200606, end: 20110628

REACTIONS (8)
  - Pain [None]
  - Embedded device [None]
  - Abdominal pain [None]
  - Infertility female [None]
  - Device issue [None]
  - Device use error [None]
  - Injury [None]
  - Dyspareunia [None]

NARRATIVE: CASE EVENT DATE: 200607
